FAERS Safety Report 13370285 (Version 2)
Quarter: 2017Q2

REPORT INFORMATION
  Report Type: Spontaneous
  Country: IL (occurrence: IL)
  Receive Date: 20170324
  Receipt Date: 20170508
  Transmission Date: 20170830
  Serious: Yes (Other)
  Sender: FDA-Public Use
  Company Number: IL-BAYER-2017-050740

PATIENT
  Age: 72 Year
  Sex: Male

DRUGS (1)
  1. XOFIGO [Suspect]
     Active Substance: RADIUM RA-223 DICHLORIDE
     Dosage: UNK
     Route: 042
     Dates: start: 20170201, end: 2017

REACTIONS (4)
  - Metastases to spinal cord [None]
  - Spinal cord compression [None]
  - Pain [None]
  - Neoplasm progression [None]
